FAERS Safety Report 5065626-3 (Version None)
Quarter: 2006Q3

REPORT INFORMATION
  Report Type: 
  Country: None (occurrence: None)
  Receive Date: 20060725
  Receipt Date: 20060629
  Transmission Date: 20061208
  Serious: Yes (Hospitalization)
  Sender: FDA-Public Use
  Company Number: 200612077BWH

PATIENT
  Age: 63 Year
  Sex: Male
  Weight: 67.586 kg

DRUGS (7)
  1. SORAFENIB [Suspect]
     Indication: HEPATIC NEOPLASM MALIGNANT
     Dosage: 400 MG, BID; ORAL, 100 MG, BID; ORAL
     Route: 048
     Dates: start: 20060301
  2. SORAFENIB [Suspect]
     Indication: HEPATIC NEOPLASM MALIGNANT
     Dosage: 400 MG, BID; ORAL, 100 MG, BID; ORAL
     Route: 048
     Dates: start: 20060401
  3. BUMEX [Concomitant]
  4. INSULIN [Concomitant]
  5. PROTONIX [Concomitant]
  6. ALDACTONE [Concomitant]
  7. AVASTIN [Concomitant]

REACTIONS (7)
  - AMMONIA INCREASED [None]
  - ASTHENIA [None]
  - BLOOD POTASSIUM INCREASED [None]
  - DISORIENTATION [None]
  - LIVER FUNCTION TEST ABNORMAL [None]
  - MENTAL STATUS CHANGES [None]
  - SOMNOLENCE [None]
